FAERS Safety Report 13099115 (Version 1)
Quarter: 2017Q1

REPORT INFORMATION
  Report Type: Spontaneous
  Country: US (occurrence: US)
  Receive Date: 20170109
  Receipt Date: 20170109
  Transmission Date: 20170428
  Serious: Yes (Other)
  Sender: FDA-Public Use
  Company Number: US-NOVOPROD-525875

PATIENT
  Age: 65 Year
  Sex: Female
  Weight: 92.63 kg

DRUGS (10)
  1. GLYBURIDE. [Suspect]
     Active Substance: GLYBURIDE
     Dosage: 5 MG, BID
     Route: 048
     Dates: end: 201612
  2. BIOTIN [Concomitant]
     Active Substance: BIOTIN
     Indication: VITAMIN SUPPLEMENTATION
     Dosage: UNK
     Route: 048
  3. GLYBURIDE. [Suspect]
     Active Substance: GLYBURIDE
     Dosage: 5 MG, QD
     Route: 048
     Dates: start: 201612, end: 201612
  4. GLYBURIDE. [Suspect]
     Active Substance: GLYBURIDE
     Dosage: 5 MG, BID
     Route: 048
     Dates: start: 201612
  5. GLYBURIDE. [Suspect]
     Active Substance: GLYBURIDE
     Indication: TYPE 2 DIABETES MELLITUS
     Dosage: 2.5 MG, BID
     Route: 048
     Dates: start: 2005
  6. TRESIBA FLEXTOUCH U200 [Suspect]
     Active Substance: INSULIN DEGLUDEC
     Indication: TYPE 2 DIABETES MELLITUS
     Dosage: 28-30 UNITS, QD IN AM
     Route: 058
     Dates: start: 201612
  7. LASIX [Concomitant]
     Active Substance: FUROSEMIDE
     Indication: PRODUCT USED FOR UNKNOWN INDICATION
     Dosage: UNK
     Route: 048
  8. VITAMIN D                          /00107901/ [Concomitant]
     Active Substance: ERGOCALCIFEROL
     Indication: VITAMIN SUPPLEMENTATION
     Dosage: UNK
     Route: 048
  9. TRESIBA FLEXTOUCH U200 [Suspect]
     Active Substance: INSULIN DEGLUDEC
     Dosage: 18-22 UNITS, QD AT NIGHT
     Route: 058
     Dates: start: 201612
  10. TRESIBA FLEXTOUCH U200 [Suspect]
     Active Substance: INSULIN DEGLUDEC
     Dosage: UNK, BID
     Route: 058

REACTIONS (4)
  - Off label use [Not Recovered/Not Resolved]
  - Blood glucose decreased [Not Recovered/Not Resolved]
  - Blood pressure increased [Unknown]
  - Pneumonia [Recovering/Resolving]

NARRATIVE: CASE EVENT DATE: 201612
